FAERS Safety Report 21062888 (Version 1)
Quarter: 2022Q3

REPORT INFORMATION
  Report Type: Other
  Country: US (occurrence: None)
  Receive Date: 20220711
  Receipt Date: 20220711
  Transmission Date: 20221027
  Serious: Yes (Hospitalization)
  Sender: FDA-Public Use
  Company Number: US-ROCHE-3129594

PATIENT
  Age: 80 Year
  Sex: Female

DRUGS (21)
  1. OCRELIZUMAB [Suspect]
     Active Substance: OCRELIZUMAB
     Indication: Multiple sclerosis
     Dosage: FIRST INDUCTION DOSE?300 MG ON DAY 1 AND DAY 15 THEN 600 MG EVERY 6 MONTHS.
     Route: 042
     Dates: start: 20191022, end: 20191022
  2. OCRELIZUMAB [Suspect]
     Active Substance: OCRELIZUMAB
     Dosage: 2ND INDUCTION DOSE
     Route: 042
     Dates: start: 20191105, end: 20191105
  3. OCRELIZUMAB [Suspect]
     Active Substance: OCRELIZUMAB
     Route: 042
     Dates: start: 20200421, end: 20200421
  4. PLAVIX [Concomitant]
     Active Substance: CLOPIDOGREL BISULFATE
     Dates: start: 2018
  5. PLAVIX [Concomitant]
     Active Substance: CLOPIDOGREL BISULFATE
     Dates: start: 20201020, end: 20201103
  6. GLIPIZIDE ER [Concomitant]
     Active Substance: GLIPIZIDE
     Dates: start: 2015
  7. VITAMIN B12 [Concomitant]
     Active Substance: CYANOCOBALAMIN
     Dates: start: 20170921
  8. ERGOCALCIFEROL [Concomitant]
     Active Substance: ERGOCALCIFEROL
     Dates: start: 2017
  9. TREMFYA [Concomitant]
     Active Substance: GUSELKUMAB
     Dates: start: 2017, end: 202002
  10. PRISTIQ EXTENDED-RELEASE [Concomitant]
     Active Substance: DESVENLAFAXINE SUCCINATE
     Dates: start: 201712, end: 20200401
  11. PRISTIQ EXTENDED-RELEASE [Concomitant]
     Active Substance: DESVENLAFAXINE SUCCINATE
     Dates: start: 202005
  12. TIZANIDINE [Concomitant]
     Active Substance: TIZANIDINE
     Dates: start: 201802
  13. MECLIZINE [Concomitant]
     Active Substance: MECLIZINE HYDROCHLORIDE
     Dates: start: 20200514
  14. TENORMIN [Concomitant]
     Active Substance: ATENOLOL
     Dates: start: 2017
  15. NORVASC [Concomitant]
     Active Substance: AMLODIPINE BESYLATE
     Dates: start: 2019, end: 202004
  16. NORVASC [Concomitant]
     Active Substance: AMLODIPINE BESYLATE
     Dates: start: 202010
  17. SKYRIZI [Concomitant]
     Active Substance: RISANKIZUMAB-RZAA
     Dates: start: 202010
  18. ASPIRIN [Concomitant]
     Active Substance: ASPIRIN
     Dates: start: 20201020
  19. ASPIRIN [Concomitant]
     Active Substance: ASPIRIN
     Dates: start: 20201117
  20. IRBESARTAN [Concomitant]
     Active Substance: IRBESARTAN
     Dates: start: 20201103
  21. REPATHA [Concomitant]
     Active Substance: EVOLOCUMAB
     Dates: start: 202011

REACTIONS (1)
  - COVID-19 [Recovered/Resolved]

NARRATIVE: CASE EVENT DATE: 20220210
